FAERS Safety Report 8664495 (Version 3)
Quarter: 2013Q1

REPORT INFORMATION
  Report Type: Spontaneous
  Country: GB (occurrence: None)
  Receive Date: 20120627
  Receipt Date: 20121227
  Transmission Date: 20140127
  Serious: Yes (Other)
  Sender: FDA-Public Use
  Company Number: AUR-APL-2012-02684

PATIENT
  Age: 31 Year
  Sex: Female

DRUGS (2)
  1. MIRTAZAPINE [Suspect]
     Indication: DEPRESSION
     Dosage: (30 MG), ORAL
     Route: 048
     Dates: start: 2006
  2. HALOPERIDOL [Suspect]
     Indication: ANXIETY
     Dosage: (0.5 MG), ORAL
     Route: 048
     Dates: start: 201201

REACTIONS (2)
  - Gestational diabetes [None]
  - Maternal exposure during pregnancy [None]
